FAERS Safety Report 4820495-9 (Version None)
Quarter: 2005Q4

REPORT INFORMATION
  Report Type: 
  Country: None (occurrence: None)
  Receive Date: 20051014
  Receipt Date: 20050914
  Transmission Date: 20060501
  Serious: No
  Sender: FDA-Public Use
  Company Number: 2005SP002965

PATIENT
  Age: 66 Year
  Sex: Female
  Weight: 100.6985 kg

DRUGS (1)
  1. LUNESTA [Suspect]
     Dosage: 3 MG; HS
     Dates: start: 20050913

REACTIONS (4)
  - DRUG INEFFECTIVE [None]
  - DYSGEUSIA [None]
  - INITIAL INSOMNIA [None]
  - PRURITUS GENERALISED [None]
